FAERS Safety Report 6220564-5 (Version None)
Quarter: 2009Q2

REPORT INFORMATION
  Report Type: 
  Country: None (occurrence: None)
  Receive Date: 20090603
  Receipt Date: 20090527
  Transmission Date: 20091009
  Serious: Yes (Hospitalization)
  Sender: FDA-Public Use
  Company Number: WAES 0905USA04100

PATIENT
  Age: 58 Year
  Sex: Male
  Weight: 90.7194 kg

DRUGS (10)
  1. DECADRON [Suspect]
     Indication: PROPHYLAXIS
     Dosage: 4 MG/BID/PO; 2 MG/BID/PO; 1 MG/BID/PO; 6 MG/Q6H/PO; PO
     Route: 048
     Dates: start: 20090101, end: 20090101
  2. DECADRON [Suspect]
     Indication: PROPHYLAXIS
     Dosage: 4 MG/BID/PO; 2 MG/BID/PO; 1 MG/BID/PO; 6 MG/Q6H/PO; PO
     Route: 048
     Dates: start: 20090220, end: 20090101
  3. DECADRON [Suspect]
     Indication: PROPHYLAXIS
     Dosage: 4 MG/BID/PO; 2 MG/BID/PO; 1 MG/BID/PO; 6 MG/Q6H/PO; PO
     Route: 048
     Dates: start: 20090325, end: 20090301
  4. DECADRON [Suspect]
     Indication: PROPHYLAXIS
     Dosage: 4 MG/BID/PO; 2 MG/BID/PO; 1 MG/BID/PO; 6 MG/Q6H/PO; PO
     Route: 048
     Dates: start: 20090101, end: 20090325
  5. DECADRON [Suspect]
     Indication: PROPHYLAXIS
     Dosage: 4 MG/BID/PO; 2 MG/BID/PO; 1 MG/BID/PO; 6 MG/Q6H/PO; PO
     Route: 048
     Dates: start: 20090327
  6. DILANTIN [Concomitant]
  7. KEPPRA [Concomitant]
  8. NEXIUM [Concomitant]
  9. TEMODAR [Concomitant]
  10. METOPROLOL SUCCINATE [Concomitant]

REACTIONS (4)
  - BLOOD GLUCOSE INCREASED [None]
  - BLOOD SODIUM DECREASED [None]
  - BRAIN SCAN ABNORMAL [None]
  - HEADACHE [None]
